FAERS Safety Report 11615634 (Version 2)
Quarter: 2015Q4

REPORT INFORMATION
  Report Type: Spontaneous
  Country: US (occurrence: None)
  Receive Date: 20151008
  Receipt Date: 20151008
  Transmission Date: 20160304
  Serious: Yes (Hospitalization)
  Sender: FDA-Public Use
  Company Number: None

PATIENT
  Age: 46 Year
  Sex: Female

DRUGS (7)
  1. ZINC [Concomitant]
     Active Substance: ZINC\ZINC CHLORIDE
  2. BRAND COPAXONE [Concomitant]
  3. MULTI-VIT [Concomitant]
     Active Substance: VITAMINS
  4. VITAMIN D [Concomitant]
     Active Substance: CHOLECALCIFEROL
  5. CALCIUM [Concomitant]
     Active Substance: CALCIUM
  6. GLATIRAMER [Suspect]
     Active Substance: GLATIRAMER
     Indication: MULTIPLE SCLEROSIS
     Route: 030
     Dates: start: 20150601, end: 20150602
  7. MAGNESIUM [Concomitant]
     Active Substance: MAGNESIUM

REACTIONS (8)
  - Vomiting [None]
  - Diarrhoea [None]
  - Disturbance in attention [None]
  - Fatigue [None]
  - Dyspnoea [None]
  - Confusional state [None]
  - Chest pain [None]
  - Product substitution issue [None]

NARRATIVE: CASE EVENT DATE: 20150601
